FAERS Safety Report 7969619-5 (Version None)
Quarter: 2011Q4

REPORT INFORMATION
  Report Type: 
  Country: None (occurrence: None)
  Receive Date: 20111212
  Receipt Date: 20111208
  Transmission Date: 20120403
  Serious: Yes (Other)
  Sender: FDA-Public Use
  Company Number: US-PFIZER INC-2011280147

PATIENT
  Sex: Female
  Weight: 90.703 kg

DRUGS (6)
  1. GEODON [Suspect]
     Indication: MOOD SWINGS
  2. VITAMIN B-12 [Concomitant]
     Dosage: 500 MG, 1X/DAY
     Dates: start: 20110701
  3. PROPRANOLOL [Concomitant]
     Indication: CARDIAC DISORDER
     Dosage: UNK
     Dates: start: 20110701
  4. GEODON [Suspect]
     Indication: DEPRESSION
     Dosage: UNK, 1X/DAY
     Route: 048
     Dates: start: 20110901, end: 20110901
  5. CYMBALTA [Concomitant]
     Indication: DEPRESSION
     Dosage: 30 MG, UNK
     Dates: start: 20110701
  6. INDOMETHACIN [Concomitant]
     Indication: ARTHRITIS
     Dosage: 25 MG TWO CAPSULES EVERY 6 HOURS
     Dates: start: 20110701

REACTIONS (4)
  - HYPERSENSITIVITY [None]
  - PHARYNGEAL OEDEMA [None]
  - OEDEMA MOUTH [None]
  - DYSPNOEA [None]
